FAERS Safety Report 24205650 (Version 1)
Quarter: 2024Q3

REPORT INFORMATION
  Report Type: Spontaneous
  Country: US (occurrence: None)
  Receive Date: 20240813
  Receipt Date: 20240813
  Transmission Date: 20241017
  Serious: Yes (Other)
  Sender: Public
  Company Number: None

PATIENT
  Sex: Female

DRUGS (1)
  1. DEFERASIROX [Suspect]
     Active Substance: DEFERASIROX
     Indication: Iron metabolism disorder
     Dosage: OTHER QUANTITY : COMPLETELY DISSOLVE 2 TABLETS, AS DIR.;?FREQUENCY : DAILY;?
     Route: 048
     Dates: start: 20230817

REACTIONS (1)
  - Hip surgery [None]
